FAERS Safety Report 10816488 (Version 2)
Quarter: 2015Q1

REPORT INFORMATION
  Report Type: Spontaneous
  Country: FR (occurrence: FR)
  Receive Date: 20150218
  Receipt Date: 20150316
  Transmission Date: 20150721
  Serious: Yes (Hospitalization, Other)
  Sender: FDA-Public Use
  Company Number: FR-JNJFOC-20150202584

PATIENT
  Age: 62 Year
  Sex: Male

DRUGS (11)
  1. PRAZEPAM [Concomitant]
     Active Substance: PRAZEPAM
     Route: 048
  2. RISPERDAL [Suspect]
     Active Substance: RISPERIDONE
     Indication: PRODUCT USED FOR UNKNOWN INDICATION
     Route: 048
  3. PROTHIADEN [Concomitant]
     Active Substance: DOTHIEPIN HYDROCHLORIDE
     Route: 048
  4. TRIAMTERENE. [Concomitant]
     Active Substance: TRIAMTERENE
     Route: 065
  5. LORMETAZEPAM [Concomitant]
     Active Substance: LORMETAZEPAM
     Route: 065
  6. RISPERDAL [Suspect]
     Active Substance: RISPERIDONE
     Indication: PRODUCT USED FOR UNKNOWN INDICATION
     Route: 048
     Dates: start: 20150113
  7. HYDROCHLOROTHIAZIDE. [Concomitant]
     Active Substance: HYDROCHLOROTHIAZIDE
     Route: 065
  8. PRAVASTATIN SODIUM. [Concomitant]
     Active Substance: PRAVASTATIN SODIUM
     Route: 065
  9. PARACETAMOL [Concomitant]
     Active Substance: ACETAMINOPHEN
     Route: 048
  10. CODEINE [Concomitant]
     Active Substance: CODEINE
     Route: 065
  11. PAROXETINE HYDROCHLORIDE. [Concomitant]
     Active Substance: PAROXETINE HYDROCHLORIDE
     Route: 065

REACTIONS (7)
  - Pyrexia [Recovered/Resolved]
  - Delirium [Recovering/Resolving]
  - Coma [Recovered/Resolved]
  - Confusional state [Recovered/Resolved]
  - Neuroleptic malignant syndrome [Recovered/Resolved]
  - Transaminases increased [Recovering/Resolving]
  - Hallucination [Recovering/Resolving]

NARRATIVE: CASE EVENT DATE: 201501
